FAERS Safety Report 12883983 (Version 2)
Quarter: 2016Q4

REPORT INFORMATION
  Report Type: Spontaneous
  Country: US (occurrence: US)
  Receive Date: 20161026
  Receipt Date: 20161104
  Transmission Date: 20170207
  Serious: Yes (Other)
  Sender: FDA-Public Use
  Company Number: US-AMGEN-USASP2016145218

PATIENT
  Age: 80 Year
  Sex: Female
  Weight: 62.13 kg

DRUGS (1)
  1. PROLIA [Suspect]
     Active Substance: DENOSUMAB
     Indication: OSTEOPOROSIS POSTMENOPAUSAL
     Dosage: UNK
     Route: 065
     Dates: start: 201202

REACTIONS (4)
  - Squamous cell carcinoma [Unknown]
  - Injection site exfoliation [Unknown]
  - Injection site vesicles [Unknown]
  - Aortic aneurysm [Unknown]
